FAERS Safety Report 4359738-7 (Version None)
Quarter: 2004Q2

REPORT INFORMATION
  Report Type: 
  Country: None (occurrence: None)
  Receive Date: 20040518
  Receipt Date: 20040507
  Transmission Date: 20050107
  Serious: Yes (Other)
  Sender: FDA-Public Use
  Company Number: US-MERCK-0405USA00425

PATIENT
  Age: 57 Year
  Sex: Female

DRUGS (17)
  1. ASCORBIC ACID [Concomitant]
     Route: 065
  2. CALCIUM (UNSPECIFIED) AND VITAMIN D (UNSPECIFIED) [Concomitant]
     Route: 065
  3. CHONDROITIN SULFATE SODIUM AND GLUCOSAMINE HYDROCHLORIDE [Concomitant]
     Route: 065
  4. DICYCLOMINE HYDROCHLORIDE [Concomitant]
     Route: 065
  5. BENTYL [Concomitant]
     Route: 065
  6. PREMARIN [Concomitant]
     Route: 065
  7. FOLIC ACID [Concomitant]
     Route: 065
  8. REMICADE [Suspect]
     Indication: RHEUMATOID ARTHRITIS
     Route: 041
     Dates: start: 20000101, end: 20020520
  9. REMICADE [Suspect]
     Route: 041
     Dates: start: 20020521, end: 20030402
  10. LEVOXYL [Concomitant]
     Route: 065
  11. METHOTREXATE [Concomitant]
     Route: 065
     Dates: end: 20030301
  12. MEDROL [Concomitant]
     Route: 065
  13. PYRIDOXINE [Concomitant]
     Route: 065
  14. VIOXX [Suspect]
     Route: 048
     Dates: end: 20030101
  15. ZOLOFT [Concomitant]
     Route: 065
  16. VITAMIN E [Concomitant]
     Route: 065
  17. VITAMINS (UNSPECIFIED) [Concomitant]
     Route: 065

REACTIONS (18)
  - CLOSED HEAD INJURY [None]
  - CONFUSIONAL STATE [None]
  - DEMYELINATION [None]
  - DEPRESSED LEVEL OF CONSCIOUSNESS [None]
  - DIFFICULTY IN WALKING [None]
  - DIZZINESS [None]
  - DYSPNOEA [None]
  - FALL [None]
  - GLIOMA [None]
  - HOFFMANN'S SIGN [None]
  - HYPOAESTHESIA [None]
  - LOSS OF CONSCIOUSNESS [None]
  - MEDICATION ERROR [None]
  - PARAESTHESIA [None]
  - RHEUMATOID ARTHRITIS [None]
  - SELF-MEDICATION [None]
  - SENSATION OF BLOCK IN EAR [None]
  - TINNITUS [None]
